FAERS Safety Report 8464718-6 (Version None)
Quarter: 2012Q2

REPORT INFORMATION
  Report Type: 
  Country: None (occurrence: None)
  Receive Date: 20120626
  Receipt Date: 20120620
  Transmission Date: 20120825
  Serious: No
  Sender: FDA-Public Use
  Company Number: US-PFIZER INC-2012149390

PATIENT
  Sex: Male
  Weight: 96.599 kg

DRUGS (1)
  1. LYRICA [Suspect]
     Indication: PAIN
     Dosage: 75 MG, 3X/DAY
     Route: 048

REACTIONS (5)
  - OEDEMA MOUTH [None]
  - TOOTH DISORDER [None]
  - DENTAL CARIES [None]
  - TOOTH FRACTURE [None]
  - GINGIVAL DISORDER [None]
